FAERS Safety Report 16763627 (Version 1)
Quarter: 2019Q3

REPORT INFORMATION
  Report Type: Spontaneous
  Country: US (occurrence: US)
  Receive Date: 20190902
  Receipt Date: 20190902
  Transmission Date: 20191005
  Serious: No
  Sender: FDA-Public Use
  Company Number: US-AMGEN-USASP2019139082

PATIENT
  Age: 75 Year
  Sex: Male

DRUGS (1)
  1. REPATHA [Suspect]
     Active Substance: EVOLOCUMAB
     Indication: BLOOD CHOLESTEROL ABNORMAL
     Dosage: 420 MILLIGRAM
     Route: 065
     Dates: start: 20190515, end: 20190515

REACTIONS (5)
  - Musculoskeletal stiffness [Not Recovered/Not Resolved]
  - Epicondylitis [Unknown]
  - Dermatitis contact [Unknown]
  - Back injury [Unknown]
  - Fall [Unknown]

NARRATIVE: CASE EVENT DATE: 2019
